FAERS Safety Report 12898107 (Version 1)
Quarter: 2016Q4

REPORT INFORMATION
  Report Type: Spontaneous
  Country: BR (occurrence: BR)
  Receive Date: 20161031
  Receipt Date: 20161031
  Transmission Date: 20170207
  Serious: Yes (Death, Hospitalization, Other)
  Sender: FDA-Public Use
  Company Number: BR-GILEAD-2016-0240354

PATIENT
  Age: 58 Year
  Sex: Male
  Weight: 70 kg

DRUGS (9)
  1. NEOMYCIN [Concomitant]
     Active Substance: NEOMYCIN
  2. ZINC SULFATE [Concomitant]
     Active Substance: ZINC SULFATE\ZINC SULFATE ANHYDROUS
  3. ETOMIDATE. [Concomitant]
     Active Substance: ETOMIDATE
  4. FENTANYL. [Concomitant]
     Active Substance: FENTANYL
  5. SOVALDI [Suspect]
     Active Substance: SOFOSBUVIR
     Indication: HEPATITIS C
     Dosage: 400 MG, UNK
     Route: 048
     Dates: start: 20160531, end: 2016
  6. RIBAVIRIN. [Concomitant]
     Active Substance: RIBAVIRIN
     Dosage: 250 MG, UNK
     Route: 048
     Dates: start: 20160531, end: 2016
  7. DAKLINZA [Concomitant]
     Active Substance: DACLATASVIR
     Dosage: 60 MG, UNK
     Route: 048
     Dates: start: 20160531, end: 2016
  8. LACTULOSE. [Concomitant]
     Active Substance: LACTULOSE
  9. HYDROXYZINE [Concomitant]
     Active Substance: HYDROXYZINE\HYDROXYZINE HYDROCHLORIDE

REACTIONS (11)
  - Hepatorenal syndrome [Fatal]
  - Haemodynamic instability [Fatal]
  - Pyrexia [Fatal]
  - Peritonitis bacterial [Fatal]
  - Multiple organ dysfunction syndrome [Fatal]
  - Dyspnoea [Fatal]
  - Anuria [Fatal]
  - Hyperkalaemia [Fatal]
  - Somnolence [Fatal]
  - Abdominal pain [Fatal]
  - Tachypnoea [Fatal]

NARRATIVE: CASE EVENT DATE: 20160725
